FAERS Safety Report 20503315 (Version 1)
Quarter: 2022Q1

REPORT INFORMATION
  Report Type: Spontaneous
  Country: CN (occurrence: CN)
  Receive Date: 20220222
  Receipt Date: 20220222
  Transmission Date: 20220423
  Serious: Yes (Other)
  Sender: FDA-Public Use
  Company Number: CN-PFIZER INC-202200248210

PATIENT
  Age: 73 Year
  Sex: Male
  Weight: 52 kg

DRUGS (3)
  1. SOLU-MEDROL [Suspect]
     Active Substance: METHYLPREDNISOLONE SODIUM SUCCINATE
     Indication: Inflammation
     Dosage: 40 MG, 1X/DAY
     Route: 041
     Dates: start: 20220129, end: 20220129
  2. SOLU-MEDROL [Suspect]
     Active Substance: METHYLPREDNISOLONE SODIUM SUCCINATE
     Indication: Asthma
  3. CEFOTAXIME SODIUM [Concomitant]
     Active Substance: CEFOTAXIME SODIUM
     Indication: Anti-infective therapy
     Dosage: 2 G, 2X/DAY
     Route: 041
     Dates: start: 20220129, end: 20220129

REACTIONS (5)
  - Mediastinal disorder [Recovering/Resolving]
  - Hiccups [Recovering/Resolving]
  - Abdominal discomfort [Unknown]
  - Pharyngeal erythema [Unknown]
  - Abdominal pain upper [Unknown]

NARRATIVE: CASE EVENT DATE: 20220129
